FAERS Safety Report 8611448-3 (Version None)
Quarter: 2012Q3

REPORT INFORMATION
  Report Type: 
  Country: None (occurrence: None)
  Receive Date: 20120809
  Receipt Date: 20120725
  Transmission Date: 20120928
  Serious: Yes (Life-Threatening, Hospitalization, Disabling, Other)
  Sender: FDA-Public Use
  Company Number: 2012MA009493

PATIENT
  Age: 90 Year
  Sex: Female

DRUGS (5)
  1. OXYCODONE HCL [Suspect]
     Indication: ANALGESIC THERAPY
     Dosage: 5 MG;PRN;PO
     Route: 048
     Dates: start: 20120628, end: 20120705
  2. CLONAZEPAM [Suspect]
     Indication: ANALGESIC THERAPY
     Dosage: 125 UG;QD;PO
     Route: 048
     Dates: start: 20120630, end: 20120709
  3. ONDANSETRON [Suspect]
     Indication: NAUSEA
     Dosage: 4 PO;BID;PO
     Route: 048
     Dates: start: 20120628
  4. KADIAN [Suspect]
     Indication: ANALGESIC THERAPY
     Dosage: 5 MG;Q2H;PO
     Route: 048
  5. METOCLOPRAMIDE HYDROCHLORIDE [Suspect]
     Indication: NAUSEA
     Dosage: 10 MG;QD;PO
     Route: 048
     Dates: start: 20120619, end: 20120710

REACTIONS (5)
  - RASH [None]
  - BLISTER [None]
  - SKIN EXFOLIATION [None]
  - EXCORIATION [None]
  - SKIN REACTION [None]
